FAERS Safety Report 10963525 (Version 1)
Quarter: 2015Q1

REPORT INFORMATION
  Report Type: Spontaneous
  Country: US (occurrence: None)
  Receive Date: 20150327
  Receipt Date: 20150327
  Transmission Date: 20150721
  Serious: No
  Sender: FDA-Public Use
  Company Number: None

PATIENT
  Age: 59 Year
  Sex: Male
  Weight: 89.7 kg

DRUGS (1)
  1. TIGECYCLINE [Suspect]
     Active Substance: TIGECYCLINE
     Indication: INFECTION
     Route: 042
     Dates: start: 20150309, end: 20150319

REACTIONS (4)
  - Lipase increased [None]
  - Hyperkalaemia [None]
  - Blood urea increased [None]
  - Azotaemia [None]

NARRATIVE: CASE EVENT DATE: 20140319
